FAERS Safety Report 5390502-6 (Version None)
Quarter: 2007Q3

REPORT INFORMATION
  Report Type: 
  Country: None (occurrence: None)
  Receive Date: 20070718
  Receipt Date: 20070504
  Transmission Date: 20080115
  Serious: No
  Sender: FDA-Public Use
  Company Number: US-KINGPHARMUSA00001-K200700561

PATIENT

DRUGS (2)
  1. LEVOXYL [Suspect]
     Dosage: 50 MCG, UNK
  2. LEVOXYL [Suspect]
     Dosage: 75 MCG, UNK

REACTIONS (10)
  - ANXIETY [None]
  - CHEST DISCOMFORT [None]
  - DYSPHAGIA [None]
  - EAR PAIN [None]
  - FLUID RETENTION [None]
  - HYPERTHYROIDISM [None]
  - INSOMNIA [None]
  - PHARYNGOLARYNGEAL PAIN [None]
  - TREMOR [None]
  - UPPER RESPIRATORY TRACT CONGESTION [None]
